FAERS Safety Report 23575596 (Version 1)
Quarter: 2024Q1

REPORT INFORMATION
  Report Type: Spontaneous
  Country: US (occurrence: None)
  Receive Date: 20240228
  Receipt Date: 20240228
  Transmission Date: 20240409
  Serious: Yes (Other)
  Sender: FDA-Public Use
  Company Number: 2024A045350

PATIENT

DRUGS (2)
  1. FULVESTRANT [Suspect]
     Active Substance: FULVESTRANT
     Route: 030
  2. IBRANCE [Suspect]
     Active Substance: PALBOCICLIB
     Route: 048

REACTIONS (11)
  - Feeling abnormal [Unknown]
  - Mass [Unknown]
  - Mental disorder [Unknown]
  - Diarrhoea [Unknown]
  - Pruritus [Unknown]
  - Scratch [Unknown]
  - Scar [Unknown]
  - Needle issue [Unknown]
  - Gait disturbance [Unknown]
  - Pain [Unknown]
  - Hallucination [Unknown]
